FAERS Safety Report 22284156 (Version 1)
Quarter: 2023Q2

REPORT INFORMATION
  Report Type: Spontaneous
  Country: US (occurrence: None)
  Receive Date: 20230503
  Receipt Date: 20230503
  Transmission Date: 20230722
  Serious: Yes (Death)
  Sender: FDA-Public Use
  Company Number: None

PATIENT
  Age: 62 Year
  Sex: Male

DRUGS (1)
  1. DROXIDOPA [Suspect]
     Active Substance: DROXIDOPA
     Dosage: 200 MG ORAL?? TAKE 2 CAPSULES BY MOUTH THREE TIMES DAILY?
     Route: 048
     Dates: start: 20230222

REACTIONS (1)
  - Death [None]

NARRATIVE: CASE EVENT DATE: 20230319
